FAERS Safety Report 12900301 (Version 1)
Quarter: 2016Q4

REPORT INFORMATION
  Report Type: Spontaneous
  Country: US (occurrence: US)
  Receive Date: 20161028
  Receipt Date: 20161028
  Transmission Date: 20170207
  Serious: Yes (Death, Life-Threatening, Hospitalization)
  Sender: FDA-Public Use
  Company Number: None

PATIENT
  Age: 80 Year
  Sex: Male
  Weight: 82.8 kg

DRUGS (1)
  1. WARFARIN [Suspect]
     Active Substance: WARFARIN
     Indication: ATRIAL FIBRILLATION
     Dates: start: 20110101, end: 20160929

REACTIONS (5)
  - Subdural haematoma [None]
  - Pneumonia [None]
  - Haemorrhage intracranial [None]
  - Seizure [None]
  - Postoperative respiratory failure [None]

NARRATIVE: CASE EVENT DATE: 20160929
